FAERS Safety Report 4303631-2 (Version None)
Quarter: 2004Q1

REPORT INFORMATION
  Report Type: 
  Country: None (occurrence: None)
  Receive Date: 20040223
  Receipt Date: 20040210
  Transmission Date: 20041129
  Serious: Yes (Death, Hospitalization)
  Sender: FDA-Public Use
  Company Number: 163-20785-04020049

PATIENT
  Age: 75 Year
  Sex: Male

DRUGS (1)
  1. THALOMID [Suspect]
     Indication: RECTAL CANCER
     Dosage: 200 MG, DAILY, ORAL
     Route: 048
     Dates: start: 20031217

REACTIONS (2)
  - CONVULSION [None]
  - GENERAL PHYSICAL HEALTH DETERIORATION [None]
